FAERS Safety Report 9402780 (Version 1)
Quarter: 2013Q3

REPORT INFORMATION
  Report Type: Spontaneous
  Country: US (occurrence: None)
  Receive Date: 20130715
  Receipt Date: 20130715
  Transmission Date: 20140515
  Serious: Yes (Other)
  Sender: FDA-Public Use
  Company Number: None

PATIENT
  Age: 49 Year
  Sex: Male
  Weight: 69.85 kg

DRUGS (2)
  1. KRYSTEXXA [Suspect]
     Dosage: EVERY 2 WEEKS
     Route: 041
     Dates: start: 20130523, end: 20130711
  2. KRYSTEXXA [Suspect]
     Dosage: EVERY 2 WEEKS
     Route: 041
     Dates: start: 20130523, end: 20130711

REACTIONS (3)
  - Rash [None]
  - Pruritus [None]
  - Infusion related reaction [None]
